FAERS Safety Report 11897185 (Version 1)
Quarter: 2016Q1

REPORT INFORMATION
  Report Type: Spontaneous
  Country: US (occurrence: US)
  Receive Date: 20160108
  Receipt Date: 20160108
  Transmission Date: 20160526
  Serious: Yes (Disabling, Other)
  Sender: FDA-Public Use
  Company Number: US-HOSPIRA-3126931

PATIENT
  Age: 36 Year
  Sex: Female

DRUGS (16)
  1. CELECOXIB TEVA [Suspect]
     Active Substance: CELECOXIB
     Indication: BURSITIS
     Dates: start: 20150126
  2. CELECOXIB TEVA [Suspect]
     Active Substance: CELECOXIB
     Indication: TENDONITIS
     Dates: start: 20150126
  3. CELECOXIB TEVA [Suspect]
     Active Substance: CELECOXIB
     Indication: UNDIFFERENTIATED CONNECTIVE TISSUE DISEASE
     Dates: start: 201504
  4. CELECOXIB TEVA [Suspect]
     Active Substance: CELECOXIB
     Indication: BURSITIS
     Dates: start: 201504
  5. CELECOXIB TEVA [Suspect]
     Active Substance: CELECOXIB
     Indication: TENDONITIS
     Dates: start: 201504
  6. CELEBREX [Concomitant]
     Active Substance: CELECOXIB
     Indication: TENDONITIS
  7. CELECOXIB TEVA [Suspect]
     Active Substance: CELECOXIB
     Indication: ARTHRITIS
     Dates: start: 20150126
  8. CELECOXIB TEVA [Suspect]
     Active Substance: CELECOXIB
     Indication: ARTHRITIS
     Dates: start: 201504
  9. CELECOXIB TEVA [Suspect]
     Active Substance: CELECOXIB
     Indication: ARTHRALGIA
     Dates: start: 201504
  10. CELECOXIB TEVA [Suspect]
     Active Substance: CELECOXIB
     Indication: TENDONITIS
     Dates: start: 201504
  11. CELEBREX [Concomitant]
     Active Substance: CELECOXIB
     Indication: ARTHRITIS
  12. CELEBREX [Concomitant]
     Active Substance: CELECOXIB
     Indication: ARTHRALGIA
  13. CELECOXIB TEVA [Suspect]
     Active Substance: CELECOXIB
     Indication: ARTHRALGIA
     Dates: start: 20150126
  14. CELEBREX [Concomitant]
     Active Substance: CELECOXIB
     Indication: UNDIFFERENTIATED CONNECTIVE TISSUE DISEASE
  15. METHOTREXATE [Suspect]
     Active Substance: METHOTREXATE
     Indication: PRODUCT USED FOR UNKNOWN INDICATION
  16. CELEBREX [Concomitant]
     Active Substance: CELECOXIB
     Indication: BURSITIS

REACTIONS (6)
  - Arthralgia [Recovering/Resolving]
  - Drug ineffective [Recovering/Resolving]
  - Abdominal pain upper [Recovering/Resolving]
  - Abasia [Recovering/Resolving]
  - Malaise [Unknown]
  - Neck pain [Recovering/Resolving]

NARRATIVE: CASE EVENT DATE: 2015
